FAERS Safety Report 22256007 (Version 1)
Quarter: 2023Q2

REPORT INFORMATION
  Report Type: Spontaneous
  Country: US (occurrence: US)
  Receive Date: 20230426
  Receipt Date: 20230426
  Transmission Date: 20230721
  Serious: Yes (Other)
  Sender: FDA-Public Use
  Company Number: US-AMERICAN REGENT INC-2023000949

PATIENT
  Age: 69 Year
  Sex: Male

DRUGS (3)
  1. MANNITOL [Suspect]
     Active Substance: MANNITOL
     Indication: Herpes simplex encephalitis
     Dosage: 0.5 MG/KG EVERY 6 HOURS
     Route: 065
  2. MANNITOL [Suspect]
     Active Substance: MANNITOL
     Indication: Cerebral haematoma
     Dosage: UNK; DOSAGE INCREASED THE NEXT DAY
     Route: 065
  3. ACYCLOVIR [Concomitant]
     Active Substance: ACYCLOVIR
     Indication: Herpes simplex encephalitis
     Dosage: UNK
     Route: 065

REACTIONS (3)
  - Drug ineffective [Recovering/Resolving]
  - Herpes simplex encephalitis [Recovering/Resolving]
  - Cerebral haematoma [Recovering/Resolving]
